FAERS Safety Report 10802903 (Version 1)
Quarter: 2015Q1

REPORT INFORMATION
  Report Type: Spontaneous
  Country: FR (occurrence: FR)
  Receive Date: 20150217
  Receipt Date: 20150217
  Transmission Date: 20150721
  Serious: Yes (Hospitalization, Other)
  Sender: FDA-Public Use
  Company Number: FR-JNJFOC-20150208424

PATIENT
  Age: 42 Year
  Sex: Male

DRUGS (12)
  1. IXPRIM [Suspect]
     Active Substance: ACETAMINOPHEN\TRAMADOL HYDROCHLORIDE
     Indication: BACK PAIN
     Route: 048
     Dates: start: 20150118, end: 20150118
  2. IXPRIM [Suspect]
     Active Substance: ACETAMINOPHEN\TRAMADOL HYDROCHLORIDE
     Indication: BACK PAIN
     Route: 048
  3. BI-PROFENID [Suspect]
     Active Substance: KETOPROFEN
     Indication: PRODUCT USED FOR UNKNOWN INDICATION
     Route: 048
     Dates: start: 20150118, end: 20150118
  4. VALIUM [Suspect]
     Active Substance: DIAZEPAM
     Indication: PRODUCT USED FOR UNKNOWN INDICATION
     Route: 048
  5. IMOVANE [Suspect]
     Active Substance: ZOPICLONE
     Indication: PRODUCT USED FOR UNKNOWN INDICATION
     Route: 048
  6. THIOCOLCHICOSIDE [Suspect]
     Active Substance: THIOCOLCHICOSIDE
     Indication: PRODUCT USED FOR UNKNOWN INDICATION
     Route: 048
     Dates: start: 20150118, end: 20150118
  7. IMOVANE [Suspect]
     Active Substance: ZOPICLONE
     Indication: PRODUCT USED FOR UNKNOWN INDICATION
     Route: 048
     Dates: start: 20150118, end: 20150118
  8. TERCIAN [Suspect]
     Active Substance: CYAMEMAZINE
     Indication: PRODUCT USED FOR UNKNOWN INDICATION
     Route: 048
     Dates: start: 20150118, end: 20150118
  9. INEXIUM [Concomitant]
     Active Substance: ESOMEPRAZOLE
     Indication: PRODUCT USED FOR UNKNOWN INDICATION
     Route: 048
  10. VALIUM [Suspect]
     Active Substance: DIAZEPAM
     Indication: PRODUCT USED FOR UNKNOWN INDICATION
     Route: 048
     Dates: start: 20150118, end: 20150118
  11. THIOCOLCHICOSIDE [Suspect]
     Active Substance: THIOCOLCHICOSIDE
     Indication: PRODUCT USED FOR UNKNOWN INDICATION
     Route: 048
  12. BI-PROFENID [Suspect]
     Active Substance: KETOPROFEN
     Indication: PRODUCT USED FOR UNKNOWN INDICATION
     Route: 048

REACTIONS (5)
  - Intentional overdose [Recovered/Resolved]
  - Depressed level of consciousness [Recovered/Resolved]
  - Overdose [Recovered/Resolved]
  - Poisoning deliberate [Recovered/Resolved]
  - Coma scale abnormal [Recovered/Resolved]

NARRATIVE: CASE EVENT DATE: 20150118
